FAERS Safety Report 18751585 (Version 5)
Quarter: 2021Q4

REPORT INFORMATION
  Report Type: Report from Study
  Country: BR (occurrence: BR)
  Receive Date: 20210118
  Receipt Date: 20211014
  Transmission Date: 20220303
  Serious: Yes (Other)
  Sender: FDA-Public Use
  Company Number: NVSC2021BR009507

PATIENT
  Age: 40 Year
  Sex: Female

DRUGS (4)
  1. KISQALI [Suspect]
     Active Substance: RIBOCICLIB
     Indication: Breast cancer metastatic
     Dosage: 2 DF, QD
     Route: 065
     Dates: start: 20201110
  2. KISQALI [Suspect]
     Active Substance: RIBOCICLIB
     Dosage: 3 DF, QD
     Route: 065
     Dates: start: 202012
  3. KISQALI [Suspect]
     Active Substance: RIBOCICLIB
     Dosage: 2 DF, QD
     Route: 065
     Dates: start: 20210104
  4. ANASTROZOLE [Suspect]
     Active Substance: ANASTROZOLE
     Indication: Breast cancer metastatic
     Dosage: UNK
     Route: 065

REACTIONS (39)
  - Oedema peripheral [Not Recovered/Not Resolved]
  - Anaemia [Unknown]
  - Metastases to bone [Unknown]
  - Breast cancer metastatic [Unknown]
  - Malignant neoplasm progression [Unknown]
  - Lung neoplasm malignant [Unknown]
  - Spinal fracture [Unknown]
  - Malaise [Not Recovered/Not Resolved]
  - Bone pain [Recovered/Resolved]
  - Drug intolerance [Unknown]
  - Burning sensation [Recovered/Resolved]
  - Abdominal discomfort [Not Recovered/Not Resolved]
  - Nausea [Not Recovered/Not Resolved]
  - Dizziness [Not Recovered/Not Resolved]
  - Platelet count decreased [Not Recovered/Not Resolved]
  - Erythema [Recovered/Resolved]
  - Decreased appetite [Not Recovered/Not Resolved]
  - Weight decreased [Not Recovered/Not Resolved]
  - Dyspnoea [Unknown]
  - Body temperature increased [Recovered/Resolved]
  - Gait disturbance [Unknown]
  - Skin laceration [Unknown]
  - Dyspepsia [Not Recovered/Not Resolved]
  - Decreased immune responsiveness [Recovered/Resolved]
  - Taste disorder [Not Recovered/Not Resolved]
  - Arthralgia [Unknown]
  - Pain [Unknown]
  - COVID-19 [Unknown]
  - Asthenia [Recovering/Resolving]
  - Feeling of despair [Recovering/Resolving]
  - Headache [Recovering/Resolving]
  - Pyrexia [Recovered/Resolved]
  - Cough [Not Recovered/Not Resolved]
  - Anosmia [Recovering/Resolving]
  - Ageusia [Recovering/Resolving]
  - Peripheral swelling [Recovered/Resolved]
  - Tumour marker increased [Unknown]
  - Chills [Unknown]
  - Discouragement [Unknown]

NARRATIVE: CASE EVENT DATE: 20201110
